FAERS Safety Report 23942799 (Version 14)
Quarter: 2025Q4

REPORT INFORMATION
  Report Type: Spontaneous
  Country: US (occurrence: US)
  Receive Date: 20240605
  Receipt Date: 20251222
  Transmission Date: 20260119
  Serious: Yes (Hospitalization, Other)
  Sender: AVADEL CNS PHARMACEUTICALS, LLC
  Company Number: US-AVADEL CNS PHARMACEUTICALS, LLC-2024AVA00820

PATIENT
  Sex: Female
  Weight: 69.841 kg

DRUGS (52)
  1. LUMRYZ [Suspect]
     Active Substance: SODIUM OXYBATE
     Indication: Narcolepsy
     Dosage: 4.5 G (REPORTED AS ^4^), ONCE NIGHTLY
     Route: 048
     Dates: start: 202402, end: 2024
  2. LUMRYZ [Suspect]
     Active Substance: SODIUM OXYBATE
     Indication: Cataplexy
  3. LUMRYZ [Suspect]
     Active Substance: SODIUM OXYBATE
     Indication: Narcolepsy
     Dosage: 6 G, ONCE NIGHTLY
     Route: 048
     Dates: start: 2024, end: 2024
  4. LUMRYZ [Suspect]
     Active Substance: SODIUM OXYBATE
     Indication: Cataplexy
  5. LUMRYZ [Suspect]
     Active Substance: SODIUM OXYBATE
     Indication: Narcolepsy
     Dosage: 7.5 G, ONCE NIGHTLY
     Route: 048
     Dates: start: 2024, end: 2024
  6. LUMRYZ [Suspect]
     Active Substance: SODIUM OXYBATE
     Indication: Cataplexy
     Dosage: 7.5 G, ONCE NIGHTLY
     Route: 048
     Dates: start: 20240816
  7. LUMRYZ [Suspect]
     Active Substance: SODIUM OXYBATE
     Dosage: 7.5 G, ONCE NIGHTLY
     Route: 048
     Dates: end: 20250612
  8. LUMRYZ [Suspect]
     Active Substance: SODIUM OXYBATE
     Dosage: 7.5 G, ONCE NIGHTLY
     Route: 048
     Dates: start: 20250620, end: 2025
  9. LUMRYZ [Suspect]
     Active Substance: SODIUM OXYBATE
     Indication: Narcolepsy
     Dosage: 9 G, ONCE NIGHTLY
     Route: 048
     Dates: start: 2025, end: 2025
  10. LUMRYZ [Suspect]
     Active Substance: SODIUM OXYBATE
     Indication: Cataplexy
     Dosage: 9 G, ONCE NIGHTLY
     Route: 048
     Dates: start: 2025
  11. SUNOSI [Suspect]
     Active Substance: SOLRIAMFETOL
     Dosage: 150 MG DURING THE DAYTIME
  12. LAMICTAL [Suspect]
     Active Substance: LAMOTRIGINE
     Dosage: UNK (LOWER DOSE; JUST LESS THAN 125 MG)
  13. LAMICTAL [Suspect]
     Active Substance: LAMOTRIGINE
     Dosage: 125 MG OR 150 MG
  14. LAMICTAL [Suspect]
     Active Substance: LAMOTRIGINE
     Dosage: 100 MG IN THE EVENING
  15. LATUDA [Suspect]
     Active Substance: LURASIDONE HYDROCHLORIDE
     Dosage: UNK
     Dates: start: 2024, end: 2024
  16. NORCO [Suspect]
     Active Substance: ACETAMINOPHEN\HYDROCODONE BITARTRATE
     Indication: Pain
     Dosage: UNK
     Dates: start: 20250612, end: 202506
  17. UNSPECIFIED INGREDIENT [Suspect]
     Active Substance: UNSPECIFIED INGREDIENT
     Dosage: UNK
  18. UNSPECIFIED INGREDIENT [Suspect]
     Active Substance: UNSPECIFIED INGREDIENT
     Dosage: UNK
  19. UNSPECIFIED INGREDIENT [Suspect]
     Active Substance: UNSPECIFIED INGREDIENT
     Dosage: UNK (LOWER DOSE)
  20. EFFEXOR [Suspect]
     Active Substance: VENLAFAXINE HYDROCHLORIDE
     Dosage: 75 MG
  21. ZEPBOUND [Concomitant]
     Active Substance: TIRZEPATIDE
     Dosage: UNK
     Dates: start: 2024
  22. CYMBALTA [Concomitant]
     Active Substance: DULOXETINE HYDROCHLORIDE
     Dosage: 120 MG
  23. FEXOFENADINE [Concomitant]
     Active Substance: FEXOFENADINE HYDROCHLORIDE
     Dosage: 180 MG
  24. FAMOTIDINE [Concomitant]
     Active Substance: FAMOTIDINE
     Dosage: 40 MG
  25. CELEBREX [Concomitant]
     Active Substance: CELECOXIB
     Dosage: 100 MG IN THE MORNING AND 100 MG IN THE EVENING
  26. PANTOPRAZOLE [Concomitant]
     Active Substance: PANTOPRAZOLE
     Dosage: 20 MG
  27. VALTREX [Concomitant]
     Active Substance: VALACYCLOVIR HYDROCHLORIDE
     Dosage: 500 MG
  28. MOUNJARO [Concomitant]
     Active Substance: TIRZEPATIDE
     Dosage: UNK
     Dates: start: 2024, end: 2024
  29. MOUNJARO [Concomitant]
     Active Substance: TIRZEPATIDE
     Dosage: 2.5 MG (INCREASED DOSE)
     Dates: start: 2024
  30. ONDANSETRON [Concomitant]
     Active Substance: ONDANSETRON
  31. MULTIPLE UNSPECIFIED ^CNS (CENTRAL NERVOUS SYSTEM) TYPE MEDICATIONS^ [Concomitant]
     Dosage: UNK
  32. GABAPENTIN [Concomitant]
     Active Substance: GABAPENTIN
     Dosage: UNK
  33. GABAPENTIN [Concomitant]
     Active Substance: GABAPENTIN
     Dosage: 300 MG (INCREASED DOSE) IN THE MORNING
  34. LYSINE [Concomitant]
     Active Substance: LYSINE
     Dosage: 500 MG
  35. VITAMIN D3 [Concomitant]
     Active Substance: CHOLECALCIFEROL
     Dosage: 500 ?G
  36. VITAMIN C [Concomitant]
     Active Substance: ASCORBIC ACID
     Dosage: 500 MG
  37. CYANOCOBALAMIN [Concomitant]
     Active Substance: CYANOCOBALAMIN
     Dosage: 1000 ?G
  38. MAGNESIUM [Concomitant]
     Active Substance: MAGNESIUM
     Dosage: 500 MG
     Route: 048
  39. PROBIOTICS NOS [Concomitant]
     Active Substance: PROBIOTICS NOS
  40. EPIPEN [Concomitant]
     Active Substance: EPINEPHRINE
     Dosage: UNK, AS NEEDED
  41. BETAMETHASONE\CLOTRIMAZOLE [Concomitant]
     Active Substance: BETAMETHASONE\CLOTRIMAZOLE
     Route: 061
  42. UNSPECIFIED INGREDIENT [Concomitant]
     Active Substance: UNSPECIFIED INGREDIENT
     Dosage: 160 ?G
  43. CANNABIS SATIVA SUBSP. INDICA TOP [Concomitant]
     Active Substance: CANNABIS SATIVA SUBSP. INDICA TOP
     Dosage: UNK, DAILY
  44. ASPIRIN [Concomitant]
     Active Substance: ASPIRIN
     Dosage: ^325^
  45. IUD NOS [Concomitant]
     Active Substance: COPPER OR LEVONORGESTREL
     Dosage: UNK
     Route: 015
  46. ACETYLCYSTEINE [Concomitant]
     Active Substance: ACETYLCYSTEINE
     Dosage: UNK
  47. HERBALS\WITHANIA SOMNIFERA ROOT [Concomitant]
     Active Substance: HERBALS\WITHANIA SOMNIFERA ROOT
     Dosage: UNK
  48. BETAMETHASONE [Concomitant]
     Active Substance: BETAMETHASONE
     Dosage: UNK
     Route: 061
  49. CLOTRIMAZOLE [Concomitant]
     Active Substance: CLOTRIMAZOLE
  50. DIFLUCAN [Concomitant]
     Active Substance: FLUCONAZOLE
     Dosage: UNK
  51. FLAGYL [Concomitant]
     Active Substance: METRONIDAZOLE\METRONIDAZOLE HYDROCHLORIDE
     Dosage: UNK
  52. QNASL [Concomitant]
     Active Substance: BECLOMETHASONE DIPROPIONATE
     Dosage: UNK

REACTIONS (95)
  - Bipolar disorder [Recovering/Resolving]
  - Mental disorder [Recovering/Resolving]
  - Serotonin syndrome [Recovering/Resolving]
  - Arrhythmia [Not Recovered/Not Resolved]
  - Suicidal ideation [Recovering/Resolving]
  - Depression [Not Recovered/Not Resolved]
  - Anxiety [Not Recovered/Not Resolved]
  - Stress [Not Recovered/Not Resolved]
  - Insomnia [Not Recovered/Not Resolved]
  - Trismus [Unknown]
  - Facial pain [Unknown]
  - Transient lingual papillitis [Unknown]
  - Night sweats [Not Recovered/Not Resolved]
  - Coordination abnormal [Unknown]
  - Balance disorder [Not Recovered/Not Resolved]
  - Bradykinesia [Not Recovered/Not Resolved]
  - Hypermetabolism [Unknown]
  - Energy increased [Unknown]
  - Crying [Unknown]
  - Social avoidant behaviour [Not Recovered/Not Resolved]
  - Feeling of despair [Recovering/Resolving]
  - Psychological trauma [Unknown]
  - Brain fog [Not Recovered/Not Resolved]
  - Time perception altered [Unknown]
  - Dissociation [Unknown]
  - Hypersomnia [Unknown]
  - Photophobia [Unknown]
  - Fatigue [Not Recovered/Not Resolved]
  - Circadian rhythm sleep disorder [Unknown]
  - Hypophagia [Unknown]
  - Dehydration [Unknown]
  - Heart rate abnormal [Not Recovered/Not Resolved]
  - Palpitations [Not Recovered/Not Resolved]
  - Akathisia [Not Recovered/Not Resolved]
  - Burning sensation [Not Recovered/Not Resolved]
  - Middle insomnia [Not Recovered/Not Resolved]
  - Taste disorder [Not Recovered/Not Resolved]
  - Tachycardia [Not Recovered/Not Resolved]
  - Compulsions [Unknown]
  - Arthritis [Not Recovered/Not Resolved]
  - Foot deformity [Recovering/Resolving]
  - Discomfort [Unknown]
  - Hypermobility syndrome [Unknown]
  - Cyst [Recovered/Resolved]
  - Poor quality sleep [Unknown]
  - Sleep talking [Not Recovered/Not Resolved]
  - Blood zinc decreased [Unknown]
  - Cortisol decreased [Unknown]
  - Blood selenium increased [Recovering/Resolving]
  - Onychoclasis [Not Recovered/Not Resolved]
  - Frequent bowel movements [Not Recovered/Not Resolved]
  - Flatulence [Not Recovered/Not Resolved]
  - Alopecia [Unknown]
  - Hair texture abnormal [Not Recovered/Not Resolved]
  - Hypoaesthesia [Unknown]
  - Bruxism [Not Recovered/Not Resolved]
  - Malocclusion [Unknown]
  - Joint dislocation [Not Recovered/Not Resolved]
  - Skin discolouration [Not Recovered/Not Resolved]
  - Contusion [Not Recovered/Not Resolved]
  - Rash erythematous [Not Recovered/Not Resolved]
  - Dry skin [Not Recovered/Not Resolved]
  - Ear disorder [Unknown]
  - Nasal congestion [Unknown]
  - Cognitive disorder [Not Recovered/Not Resolved]
  - Amenorrhoea [Unknown]
  - Weight increased [Not Recovered/Not Resolved]
  - Appetite disorder [Not Recovered/Not Resolved]
  - Feeling cold [Not Recovered/Not Resolved]
  - Temperature regulation disorder [Not Recovered/Not Resolved]
  - Tendon disorder [Not Recovered/Not Resolved]
  - Temporomandibular pain and dysfunction syndrome [Not Recovered/Not Resolved]
  - Therapeutic product effect prolonged [Unknown]
  - Vomiting [Unknown]
  - Memory impairment [Not Recovered/Not Resolved]
  - Hyperhidrosis [Unknown]
  - Nocturia [Not Recovered/Not Resolved]
  - Somnolence [Not Recovered/Not Resolved]
  - Enuresis [Unknown]
  - Nausea [Not Recovered/Not Resolved]
  - Dizziness [Not Recovered/Not Resolved]
  - Emotional disorder [Not Recovered/Not Resolved]
  - Panic attack [Not Recovered/Not Resolved]
  - Paranoia [Unknown]
  - Pain [Not Recovered/Not Resolved]
  - Dry mouth [Not Recovered/Not Resolved]
  - Pain in extremity [Not Recovered/Not Resolved]
  - Paraesthesia [Not Recovered/Not Resolved]
  - Disturbance in attention [Not Recovered/Not Resolved]
  - Diarrhoea [Not Recovered/Not Resolved]
  - Therapeutic product effect decreased [Not Recovered/Not Resolved]
  - Unevaluable event [Unknown]
  - Product dose omission issue [Recovered/Resolved]
  - Product administration interrupted [Recovered/Resolved]
  - Intentional dose omission [Unknown]

NARRATIVE: CASE EVENT DATE: 20240101
